FAERS Safety Report 9688493 (Version 1)
Quarter: 2013Q4

REPORT INFORMATION
  Report Type: Spontaneous
  Country: US (occurrence: US)
  Receive Date: 20131114
  Receipt Date: 20131114
  Transmission Date: 20140711
  Serious: Yes (Death, Other)
  Sender: FDA-Public Use
  Company Number: US-TEVA-444439USA

PATIENT
  Age: 78 Year
  Sex: Male

DRUGS (3)
  1. METHOTREXATE [Suspect]
     Indication: OSTEOSARCOMA
     Dosage: UNKNOWN DOSAGE, REDUCED TO 3.5 G/M2
     Route: 065
  2. CARBOPLATIN [Concomitant]
     Indication: OSTEOSARCOMA
     Route: 065
  3. DOXORUBICIN [Concomitant]
     Indication: OSTEOSARCOMA
     Route: 065

REACTIONS (6)
  - Renal failure acute [Recovered/Resolved]
  - Death [Fatal]
  - Osteosarcoma [Unknown]
  - Delirium [Unknown]
  - Haematoma [Unknown]
  - Urinary tract infection [Unknown]
